FAERS Safety Report 8989238 (Version 1)
Quarter: 2012Q4

REPORT INFORMATION
  Report Type: Spontaneous
  Country: US (occurrence: None)
  Receive Date: 20121219
  Receipt Date: 20121219
  Transmission Date: 20130627
  Serious: Yes (Other)
  Sender: FDA-Public Use
  Company Number: 1524394

PATIENT
  Age: 64 Year
  Sex: Male

DRUGS (2)
  1. AZITHROMYCIN [Suspect]
     Indication: DRUG USE FOR UNKNOWN INDICATION
     Dosage: Not reported, Not reported (Unknown)
  2. CEFEPIME [Suspect]
     Indication: DRUG USE FOR UNKNOWN INDICATION
     Dosage: Not reported, Not reported (Unknown)

REACTIONS (6)
  - Device related infection [None]
  - Pneumonia [None]
  - Pancytopenia [None]
  - Acute respiratory failure [None]
  - Atrial fibrillation [None]
  - Neutropenic sepsis [None]
